FAERS Safety Report 22526941 (Version 1)
Quarter: 2023Q2

REPORT INFORMATION
  Report Type: Spontaneous
  Country: US (occurrence: US)
  Receive Date: 20230606
  Receipt Date: 20230606
  Transmission Date: 20230722
  Serious: No
  Sender: FDA-Public Use
  Company Number: US-MAYNE PHARMA-2022MYN000795

PATIENT
  Age: 52 Year
  Sex: Female

DRUGS (1)
  1. LEXETTE [Suspect]
     Active Substance: HALOBETASOL PROPIONATE
     Indication: Pruritus
     Dosage: UNK
     Route: 061
     Dates: start: 202109, end: 202111

REACTIONS (1)
  - Trichorrhexis [Unknown]

NARRATIVE: CASE EVENT DATE: 20211101
